FAERS Safety Report 9514568 (Version 2)
Quarter: 2014Q1

REPORT INFORMATION
  Report Type: Spontaneous
  Country: US (occurrence: None)
  Receive Date: 20130305
  Receipt Date: 20140306
  Transmission Date: 20141002
  Serious: Yes (Other)
  Sender: FDA-Public Use
  Company Number: 163-21880-12122966

PATIENT
  Age: 64 Year
  Sex: Female

DRUGS (18)
  1. REVLIMID (LENALIDOMIDE) (15 MILLIGRAM, CAPSULES) [Suspect]
     Indication: PLASMA CELL MYELOMA
     Dosage: 15 MG, 21 IN 21 D, PO
     Route: 048
     Dates: start: 20121114
  2. STOOL SOFTENER (DOCUSATE SODIUM) [Concomitant]
  3. OXYGEN [Concomitant]
  4. LOSARTAN [Concomitant]
  5. LIPITOR (ATORVASTATIN) [Concomitant]
  6. PROVENTIL (SALBUTAMOL) [Concomitant]
  7. LANTUS (INSULIN GLARGINE) [Concomitant]
  8. DIGOXIN [Concomitant]
  9. NOVOLOG (INSULIN ASPART) [Concomitant]
  10. ASPIRIN (ACETYLSALICYLIC ACID) [Concomitant]
  11. LEVOTHYROXINE [Concomitant]
  12. OMEGA-3 (OMEGA-3 TRIGLYCERIDES) [Concomitant]
  13. PLAVIX (CLOPIDOGREL SULFATE) [Concomitant]
  14. NITROGLYCERIN (GLYCERYL TRINITRATE) [Concomitant]
  15. MULTIVITAMIN [Concomitant]
  16. OXYCODONE [Concomitant]
  17. RANEXA ER (RANOLAZINE) [Concomitant]
  18. VITAMIN D (ERGOCALCIFEROL) [Concomitant]

REACTIONS (5)
  - Pain in extremity [None]
  - Back pain [None]
  - Bone pain [None]
  - Cardiovascular disorder [None]
  - Hyperaesthesia [None]
